FAERS Safety Report 5872071-7 (Version None)
Quarter: 2008Q3

REPORT INFORMATION
  Report Type: 
  Country: None (occurrence: None)
  Receive Date: 20080905
  Receipt Date: 20080903
  Transmission Date: 20090109
  Serious: Yes (Hospitalization)
  Sender: FDA-Public Use
  Company Number: A0721670A

PATIENT
  Age: 51 Year
  Sex: Female
  Weight: 84.4 kg

DRUGS (2)
  1. LAPATINIB [Suspect]
     Dosage: 1500MG PER DAY
     Route: 048
     Dates: start: 20071101
  2. BEVACIZUMAB [Suspect]
     Dosage: 10MGK CYCLIC
     Route: 042
     Dates: start: 20071101

REACTIONS (3)
  - BILE DUCT OBSTRUCTION [None]
  - JAUNDICE [None]
  - PRURITUS [None]
